FAERS Safety Report 6880105-6 (Version None)
Quarter: 2010Q3

REPORT INFORMATION
  Report Type: 
  Country: None (occurrence: None)
  Receive Date: 20100728
  Receipt Date: 20091014
  Transmission Date: 20110219
  Serious: Yes (Hospitalization, Other)
  Sender: FDA-Public Use
  Company Number: US-BRISTOL-MYERS SQUIBB COMPANY-14817704

PATIENT
  Age: 62 Year
  Sex: Male

DRUGS (6)
  1. DASATINIB [Suspect]
     Indication: CHRONIC MYELOID LEUKAEMIA
     Dates: start: 20090901, end: 20090901
  2. SYNTHROID [Suspect]
     Indication: HYPOTHYROIDISM
     Dosage: TABS  UNK DOSE AS HIGH AS 260MCG (1989 TO 1993 - UNK)
     Route: 048
  3. ALLOPURINOL [Concomitant]
  4. ESCITALOPRAM OXALATE [Concomitant]
     Dosage: TABS
     Route: 048
  5. METOPROLOL SUCCINATE [Concomitant]
     Dosage: TABS
     Route: 048
  6. SEVELAMER HCL [Concomitant]
     Indication: RENAL FAILURE
     Dosage: TABS  800MG, 1 IN 8 HR
     Route: 048

REACTIONS (5)
  - ABDOMINAL PAIN [None]
  - ASTHENIA [None]
  - HYPERHIDROSIS [None]
  - PYREXIA [None]
  - RENAL FAILURE [None]
